FAERS Safety Report 4372995-6 (Version None)
Quarter: 2004Q2

REPORT INFORMATION
  Report Type: 
  Country: None (occurrence: None)
  Receive Date: 20040608
  Receipt Date: 20030130
  Transmission Date: 20050107
  Serious: Yes (Hospitalization, Other)
  Sender: FDA-Public Use
  Company Number: US-MERCK-0302USA00009

PATIENT
  Age: 65 Year
  Sex: Male
  Weight: 70 kg

DRUGS (13)
  1. VICODIN [Concomitant]
     Route: 065
     Dates: start: 19990601
  2. ECOTRIN [Concomitant]
     Route: 065
  3. WELLBUTRIN SR [Concomitant]
     Route: 065
     Dates: start: 19990701
  4. PREVACID [Concomitant]
     Route: 065
  5. PRAVACHOL [Concomitant]
     Route: 065
  6. ACCUPRIL [Concomitant]
     Route: 065
     Dates: start: 19990818
  7. VIOXX [Suspect]
     Indication: BONE PAIN
     Route: 048
     Dates: start: 20010101
  8. VIOXX [Suspect]
     Route: 048
     Dates: start: 19990818
  9. VIOXX [Suspect]
     Route: 048
     Dates: start: 19991102
  10. VIOXX [Suspect]
     Indication: ARTHRITIS
     Route: 048
     Dates: start: 20010101
  11. VIOXX [Suspect]
     Route: 048
     Dates: start: 19990818
  12. VIOXX [Suspect]
     Route: 048
     Dates: start: 19991102
  13. EFFEXOR XR [Concomitant]
     Route: 065
     Dates: start: 19990601

REACTIONS (29)
  - ADJUSTMENT DISORDER [None]
  - ANXIETY [None]
  - ARRHYTHMIA SUPRAVENTRICULAR [None]
  - ARTHRALGIA [None]
  - ATHEROSCLEROSIS [None]
  - BLOOD PRESSURE INCREASED [None]
  - BLOOD URINE PRESENT [None]
  - CATARACT [None]
  - CHEST WALL PAIN [None]
  - DEPRESSION [None]
  - DIZZINESS [None]
  - EYE DISORDER [None]
  - FAECAL INCONTINENCE [None]
  - FLANK PAIN [None]
  - GASTRIC DISORDER [None]
  - GASTRIC HAEMORRHAGE [None]
  - HAEMORRHOIDS [None]
  - HERPES VIRUS INFECTION [None]
  - INFLUENZA [None]
  - INJURY [None]
  - INTERVERTEBRAL DISC DEGENERATION [None]
  - JOINT STIFFNESS [None]
  - MUSCLE STRAIN [None]
  - ROAD TRAFFIC ACCIDENT [None]
  - ROTATOR CUFF SYNDROME [None]
  - SPINAL COLUMN STENOSIS [None]
  - TENDONITIS [None]
  - ULCER [None]
  - VIRAL INFECTION [None]
